FAERS Safety Report 23570979 (Version 4)
Quarter: 2024Q3

REPORT INFORMATION
  Report Type: Spontaneous
  Country: US (occurrence: US)
  Receive Date: 20240227
  Receipt Date: 20240905
  Transmission Date: 20241017
  Serious: No
  Sender: PFIZER
  Company Number: US-PFIZER INC-202400051381

PATIENT
  Age: 13 Year
  Sex: Male
  Weight: 35.828 kg

DRUGS (4)
  1. OXBRYTA [Suspect]
     Active Substance: VOXELOTOR
     Indication: Sickle cell anaemia
     Dosage: 300MG/3 TABLETS BY MOUTH ONCE DAILY
     Route: 048
  2. OXBRYTA [Suspect]
     Active Substance: VOXELOTOR
     Dosage: 1500 MG, 1X/DAY (500 MG THREE TABLETS PER DAY)
     Route: 048
  3. HYDROXYUREA [Concomitant]
     Active Substance: HYDROXYUREA
     Indication: Sickle cell disease
     Dosage: UNK (500 AS REPORTED)
     Dates: start: 2015
  4. FOLIC ACID [Concomitant]
     Active Substance: FOLIC ACID
     Dosage: 1500 MG

REACTIONS (3)
  - Dizziness [Not Recovered/Not Resolved]
  - Nausea [Recovered/Resolved]
  - Off label use [Unknown]

NARRATIVE: CASE EVENT DATE: 20210124
